FAERS Safety Report 16583765 (Version 3)
Quarter: 2019Q3

REPORT INFORMATION
  Report Type: Report from Study
  Country: US (occurrence: US)
  Receive Date: 20190717
  Receipt Date: 20190917
  Transmission Date: 20191004
  Serious: Yes (Other)
  Sender: FDA-Public Use
  Company Number: US-BIOGEN-2019BI00762793

PATIENT
  Sex: Female

DRUGS (1)
  1. AVONEX [Suspect]
     Active Substance: INTERFERON BETA-1A
     Indication: MULTIPLE SCLEROSIS
     Route: 065
     Dates: start: 19971115

REACTIONS (20)
  - Hip fracture [Recovered/Resolved]
  - Wrist fracture [Recovered/Resolved]
  - Peroneal nerve palsy [Not Recovered/Not Resolved]
  - Sciatic nerve injury [Unknown]
  - Mental disorder [Unknown]
  - Motor dysfunction [Not Recovered/Not Resolved]
  - Dysarthria [Not Recovered/Not Resolved]
  - Balance disorder [Not Recovered/Not Resolved]
  - Pulmonary thrombosis [Unknown]
  - Road traffic accident [Recovered/Resolved]
  - Nuclear magnetic resonance imaging abnormal [Not Recovered/Not Resolved]
  - Asthenia [Not Recovered/Not Resolved]
  - Memory impairment [Not Recovered/Not Resolved]
  - Disturbance in attention [Not Recovered/Not Resolved]
  - Spinal fracture [Recovered/Resolved]
  - Dysphemia [Not Recovered/Not Resolved]
  - Cognitive disorder [Recovered/Resolved]
  - Antiphospholipid syndrome [Not Recovered/Not Resolved]
  - Lower limb fracture [Recovered/Resolved]
  - Fatigue [Not Recovered/Not Resolved]

NARRATIVE: CASE EVENT DATE: 2014
